FAERS Safety Report 7199204-7 (Version None)
Quarter: 2010Q4

REPORT INFORMATION
  Report Type: 
  Country: None (occurrence: None)
  Receive Date: 20101228
  Receipt Date: 20101214
  Transmission Date: 20110411
  Serious: Yes (Hospitalization, Other)
  Sender: FDA-Public Use
  Company Number: PHHY2010NL87297

PATIENT
  Age: 41 Year
  Sex: Male

DRUGS (11)
  1. CLOZAPINE [Suspect]
     Indication: SCHIZOPHRENIA
     Dosage: 500 MG
  2. CLOZAPINE [Suspect]
     Dosage: 600 MG
  3. CLOZAPINE [Suspect]
     Dosage: 500 MG
  4. LORAZEPAM [Concomitant]
     Dosage: 160 MG, 10 MG, 4 MG
  5. METHADONE [Concomitant]
     Dosage: 1 DF, UNK
  6. RISPERIDONE [Concomitant]
     Dosage: 6 MG, UNK
  7. DIAZEPAM [Concomitant]
     Dosage: 1 DF, UNK
  8. CANNABIS [Concomitant]
     Dosage: 1 DF, UNK
  9. HALOPERIDOL [Concomitant]
     Dosage: 1 DF, UNK
  10. PIPAMPERONE [Concomitant]
     Dosage: 1 DF, UNK
  11. COCAINE HYDROCHLORIDE [Concomitant]
     Dosage: 1 DF, UNK

REACTIONS (15)
  - ABDOMINAL DISCOMFORT [None]
  - AGGRESSION [None]
  - ANTIPSYCHOTIC DRUG LEVEL INCREASED [None]
  - C-REACTIVE PROTEIN INCREASED [None]
  - GASTRITIS [None]
  - HAEMOGLOBIN DECREASED [None]
  - HELICOBACTER INFECTION [None]
  - IRON DEFICIENCY ANAEMIA [None]
  - LIVER FUNCTION TEST ABNORMAL [None]
  - NORMOCHROMIC NORMOCYTIC ANAEMIA [None]
  - PLEURAL EFFUSION [None]
  - PNEUMONIA [None]
  - PYREXIA [None]
  - SEDATION [None]
  - THROMBOCYTOSIS [None]
